FAERS Safety Report 4448359-3 (Version None)
Quarter: 2004Q3

REPORT INFORMATION
  Report Type: 
  Country: None (occurrence: None)
  Receive Date: 20040910
  Receipt Date: 20040910
  Transmission Date: 20050211
  Serious: Yes (Other)
  Sender: FDA-Public Use
  Company Number: None

PATIENT
  Age: 43 Year
  Sex: Female
  Weight: 75.7507 kg

DRUGS (13)
  1. MAXALT-MLT [Suspect]
     Indication: HEADACHE
     Dosage: 5 MG
     Dates: start: 20040901, end: 20040901
  2. SINGULAIR [Concomitant]
  3. NASONEX [Concomitant]
  4. CLARITIN [Concomitant]
  5. TRICOR [Concomitant]
  6. NEXIUM [Concomitant]
  7. ZETIA [Concomitant]
  8. MAXZIDE [Concomitant]
  9. LEXAPRO [Concomitant]
  10. MICRONOR [Concomitant]
  11. INNOPRAN [Concomitant]
  12. ASPIRIN [Concomitant]
  13. FISH OIL [Concomitant]

REACTIONS (4)
  - ABNORMAL DREAMS [None]
  - DEPRESSED LEVEL OF CONSCIOUSNESS [None]
  - MOVEMENT DISORDER [None]
  - SCREAMING [None]
